FAERS Safety Report 9175531 (Version 2)
Quarter: 2013Q1

REPORT INFORMATION
  Report Type: Report from Study
  Country: CA (occurrence: CA)
  Receive Date: 20130320
  Receipt Date: 20130326
  Transmission Date: 20140127
  Serious: Yes (Hospitalization)
  Sender: FDA-Public Use
  Company Number: CA-ROCHE-1203815

PATIENT
  Age: 58 Year
  Sex: Female
  Weight: 47.6 kg

DRUGS (11)
  1. RITUXAN [Suspect]
     Indication: RHEUMATOID ARTHRITIS
     Route: 042
     Dates: start: 20110615
  2. DIPHENHYDRAMINE HCL [Concomitant]
     Indication: PREMEDICATION
     Route: 048
     Dates: start: 20110615
  3. ACETAMINOPHEN [Concomitant]
     Indication: PREMEDICATION
     Route: 048
     Dates: start: 20110615
  4. METHYLPREDNISOLONE [Concomitant]
     Indication: PREMEDICATION
     Route: 042
     Dates: start: 20110615
  5. ZOPICLONE [Concomitant]
  6. ARAVA [Concomitant]
  7. PANTOLOC [Concomitant]
  8. EZETROL [Concomitant]
  9. VITAMIN C [Concomitant]
  10. FLAXSEED OIL [Concomitant]
  11. GABAPENTIN [Concomitant]

REACTIONS (2)
  - Dehydration [Unknown]
  - Infection [Unknown]
